FAERS Safety Report 5795845-X (Version None)
Quarter: 2008Q3

REPORT INFORMATION
  Report Type: 
  Country: None (occurrence: None)
  Receive Date: 20080701
  Receipt Date: 20080617
  Transmission Date: 20090109
  Serious: Yes (Death)
  Sender: FDA-Public Use
  Company Number: DE-BAYER-200820885GPV

PATIENT
  Age: 17 Year

DRUGS (7)
  1. FLUDARABINE PHOSPHATE [Suspect]
     Indication: BONE MARROW CONDITIONING REGIMEN
     Route: 065
  2. RATG [Suspect]
     Indication: BONE MARROW CONDITIONING REGIMEN
     Route: 065
  3. ETOPOSIDE [Suspect]
     Indication: BONE MARROW CONDITIONING REGIMEN
  4. PREDNISOLONE [Concomitant]
     Indication: IMMUNOSUPPRESSION
     Route: 065
  5. ETANERCEPT [Concomitant]
     Indication: IMMUNOSUPPRESSION
  6. CYCLOSPORINE [Concomitant]
     Indication: IMMUNOSUPPRESSION
  7. MYCOPHENOLATE MOFETIL [Concomitant]
     Indication: IMMUNOSUPPRESSION

REACTIONS (3)
  - ACUTE GRAFT VERSUS HOST DISEASE [None]
  - EPSTEIN-BARR VIRUS INFECTION [None]
  - LYMPHOPROLIFERATIVE DISORDER [None]
